FAERS Safety Report 8006121-9 (Version None)
Quarter: 2011Q4

REPORT INFORMATION
  Report Type: 
  Country: None (occurrence: None)
  Receive Date: 20111226
  Receipt Date: 20111215
  Transmission Date: 20120403
  Serious: Yes (Hospitalization)
  Sender: FDA-Public Use
  Company Number: FR-PFIZER INC-2011196356

PATIENT
  Age: 41 Year
  Sex: Male

DRUGS (18)
  1. CEFTRIAXONE [Suspect]
     Dosage: 2 G, UNK
     Route: 042
     Dates: start: 20110701
  2. IMURAN [Concomitant]
     Dosage: UNK
  3. FERROUS FUMARATE [Concomitant]
     Dosage: UNK
  4. PANTOPRAZOLE [Suspect]
     Dosage: 40 MG, DAILY
     Route: 042
     Dates: start: 20110701
  5. KETOPROFEN [Concomitant]
     Dosage: UNK
  6. METHYLPREDNISOLONE [Suspect]
     Dosage: 40 MG, UNK
     Route: 042
     Dates: start: 20110701, end: 20110705
  7. CERNEVIT-12 [Suspect]
     Dosage: UNK
     Route: 042
     Dates: start: 20110701, end: 20110704
  8. FLUCONAZOLE [Suspect]
     Dosage: 400 MG, UNK
     Route: 042
     Dates: start: 20110701, end: 20110704
  9. OFLOXACIN [Suspect]
     Dosage: 600 MG, UNK
     Route: 042
     Dates: start: 20110701
  10. AMINO ACIDS [Suspect]
     Dosage: UNK
     Route: 042
     Dates: start: 20110701, end: 20110704
  11. CLOZAPINE [Concomitant]
     Dosage: 500 MG, UNK
  12. SOLUTIONS FOR PARENTERAL NUTRITION [Suspect]
     Dosage: UNK
     Route: 042
     Dates: start: 20110701, end: 20110704
  13. PROZAC [Concomitant]
     Dosage: 40 MG, UNK
  14. XANAX [Concomitant]
     Dosage: 0.75 MG, UNK
  15. SPECIAFOLDINE [Concomitant]
     Dosage: UNK
  16. ACETAMINOPHEN [Suspect]
     Dosage: 1 G, UNK
     Route: 042
     Dates: start: 20110701
  17. CLONAZEPAM [Concomitant]
     Dosage: 0.25 DF, UNK
  18. OMEPRAZOLE [Concomitant]
     Dosage: 20 MG, UNK

REACTIONS (3)
  - INFLAMMATION [None]
  - THROMBOPHLEBITIS SUPERFICIAL [None]
  - INJECTION SITE INDURATION [None]
